FAERS Safety Report 20116083 (Version 22)
Quarter: 2025Q1

REPORT INFORMATION
  Report Type: Spontaneous
  Country: PL (occurrence: PL)
  Receive Date: 20211126
  Receipt Date: 20250327
  Transmission Date: 20250408
  Serious: Yes (Hospitalization, Disabling, Other)
  Sender: AUROBINDO
  Company Number: PL-BAUSCH-BL-2021-036935

PATIENT
  Age: 83 Year
  Sex: Female
  Weight: 91 kg

DRUGS (209)
  1. ALLOPURINOL [Interacting]
     Active Substance: ALLOPURINOL
     Indication: Product used for unknown indication
     Dosage: 100 MILLIGRAM, ONCE A DAY
     Route: 048
  2. ALLOPURINOL [Interacting]
     Active Substance: ALLOPURINOL
     Dosage: 1 DOSAGE FORM, ONCE A DAY
     Route: 065
  3. ALLOPURINOL [Interacting]
     Active Substance: ALLOPURINOL
     Dosage: 100 MILLIGRAM, EVERY HOUR
     Route: 048
  4. ALLOPURINOL [Interacting]
     Active Substance: ALLOPURINOL
     Dosage: 1 DOSAGE FORM, TWO TIMES A DAY
     Route: 065
  5. ALPRAZOLAM [Interacting]
     Active Substance: ALPRAZOLAM
     Indication: Depression
     Dosage: 0.5 MILLIGRAM(INTERMITTENTLY,ON DEMAND, TYPICALLY 2 X/24 H ,
     Route: 048
  6. ALPRAZOLAM [Interacting]
     Active Substance: ALPRAZOLAM
     Route: 065
  7. ALPRAZOLAM [Interacting]
     Active Substance: ALPRAZOLAM
     Dosage: 2 DOSAGE FORM, ONCE A DAY
     Route: 065
  8. ALPRAZOLAM [Interacting]
     Active Substance: ALPRAZOLAM
     Dosage: 1 MILLIGRAM, ONCE A DAY
     Route: 065
  9. ALPRAZOLAM [Interacting]
     Active Substance: ALPRAZOLAM
     Dosage: 1 DOSAGE FORM, EVERY HOUR
     Route: 065
  10. ALPRAZOLAM [Interacting]
     Active Substance: ALPRAZOLAM
     Dosage: 1 DOSAGE FORM, TWO TIMES A DAY
     Route: 065
  11. ALPRAZOLAM [Interacting]
     Active Substance: ALPRAZOLAM
     Dosage: 0.5 MILLIGRAM, ONCE A DAY (IF NEEDED)
     Route: 048
  12. ATORVASTATIN [Suspect]
     Active Substance: ATORVASTATIN
     Indication: Product used for unknown indication
     Dosage: 20 MILLIGRAM, ONCE A DAY
     Route: 065
  13. ATORVASTATIN [Suspect]
     Active Substance: ATORVASTATIN
     Indication: Product used for unknown indication
     Dosage: 20 MILLIGRAM, ONCE A DAY
     Route: 048
  14. ATORVASTATIN [Interacting]
     Active Substance: ATORVASTATIN
     Indication: Product used for unknown indication
     Dosage: 20 MILLIGRAM, ONCE A DAY(1 DOSAGE FORMS DAILY)
     Route: 048
  15. ATORVASTATIN [Interacting]
     Active Substance: ATORVASTATIN
     Dosage: 1 DOSAGE FORM, EVERY HOUR(20 MILLIGRAM DAILY)
     Route: 048
  16. ATORVASTATIN [Interacting]
     Active Substance: ATORVASTATIN
     Dosage: 1 DOSAGE FORM, ONCE A DAY
     Route: 065
  17. BETAHISTINE [Interacting]
     Active Substance: BETAHISTINE
     Indication: Dizziness
     Dosage: 24 MILLIGRAM, ONCE A DAY
     Route: 048
  18. BETAHISTINE [Interacting]
     Active Substance: BETAHISTINE
     Dosage: 1024 MILLIGRAM, ONCE A DAY
     Route: 065
  19. BETAHISTINE [Interacting]
     Active Substance: BETAHISTINE
     Dosage: 20 MILLIGRAM, TWO TIMES A DAY
     Route: 065
  20. BETAHISTINE [Interacting]
     Active Substance: BETAHISTINE
     Dosage: 20 MILLIGRAM, ONCE A DAY
     Route: 065
  21. DONEPEZIL [Suspect]
     Active Substance: DONEPEZIL
     Indication: Product used for unknown indication
     Dosage: 5 MILLIGRAM, ONCE A DAY
     Route: 065
  22. FUROSEMIDE [Suspect]
     Active Substance: FUROSEMIDE
     Indication: Product used for unknown indication
     Dosage: 120 MILLIGRAM, EVERY(3 DOSAGE FORMS )
     Route: 065
  23. FUROSEMIDE [Suspect]
     Active Substance: FUROSEMIDE
     Dosage: 40 MILLIGRAM, 3 TIMES A DAY
     Route: 048
  24. FUROSEMIDE [Suspect]
     Active Substance: FUROSEMIDE
     Dosage: 3 DOSAGE FORM, TWO TIMES A DAY
     Route: 048
  25. FUROSEMIDE [Suspect]
     Active Substance: FUROSEMIDE
     Dosage: 1 DOSAGE FORM, TWO TIMES A DAY
     Route: 065
  26. FUROSEMIDE [Suspect]
     Active Substance: FUROSEMIDE
     Dosage: 40 MILLIGRAM, TWO TIMES A DAY (3 DF (3 TABLETS EVERY 2ND DAY). 120 MG )
     Route: 048
  27. FUROSEMIDE [Suspect]
     Active Substance: FUROSEMIDE
     Dosage: 40 MILLIGRAM, EVERY OTHER DAY
     Route: 048
  28. METOPROLOL [Interacting]
     Active Substance: METOPROLOL
     Indication: Type 2 diabetes mellitus
     Dosage: 50 MILLIGRAM, TWO TIMES A DAY
     Route: 048
  29. METOPROLOL [Interacting]
     Active Substance: METOPROLOL
     Indication: Hypertension
     Route: 065
  30. METOPROLOL [Interacting]
     Active Substance: METOPROLOL
     Dosage: 2 DOSAGE FORM, ONCE A DAY
     Route: 048
  31. METOPROLOL [Interacting]
     Active Substance: METOPROLOL
     Dosage: 100 MILLIGRAM, ONCE A DAY, (50 MG, BID/1-0-1/2)
     Route: 048
  32. METOPROLOL [Interacting]
     Active Substance: METOPROLOL
     Dosage: 1 DOSAGE FORM, TWO TIMES A DAY, (1-0-1)
     Route: 065
  33. ACETAMINOPHEN [Interacting]
     Active Substance: ACETAMINOPHEN
     Indication: Product used for unknown indication
     Dosage: 500 MILLIGRAM, ONCE A DAY
     Route: 048
  34. ACETAMINOPHEN [Interacting]
     Active Substance: ACETAMINOPHEN
     Dosage: 10000 MILLIGRAM, ONCE A DAY
     Route: 065
  35. ACETAMINOPHEN [Interacting]
     Active Substance: ACETAMINOPHEN
     Dosage: 1000 MILLIGRAM, ONCE A DAY
     Route: 065
  36. ACETAMINOPHEN [Interacting]
     Active Substance: ACETAMINOPHEN
     Dosage: 20 MILLIGRAM, TWO TIMES A DAY
     Route: 065
  37. ACETAMINOPHEN [Interacting]
     Active Substance: ACETAMINOPHEN
     Dosage: 500 MILLIGRAM, TWO TIMES A DAY
     Route: 048
  38. ACETAMINOPHEN [Interacting]
     Active Substance: ACETAMINOPHEN
     Dosage: 1 DOSAGE FORM, ONCE A DAY
     Route: 065
  39. QUETIAPINE [Suspect]
     Active Substance: QUETIAPINE
     Indication: Product used for unknown indication
     Dosage: 25 MILLIGRAM, ONCE A DAY,25 MG, QD/0-0-1
     Route: 065
  40. RAMIPRIL [Interacting]
     Active Substance: RAMIPRIL
     Indication: Cardiac failure
     Dosage: 5 MILLIGRAM, ONCE A DAY
     Route: 048
  41. RAMIPRIL [Interacting]
     Active Substance: RAMIPRIL
     Dosage: 1 DOSAGE FORM, ONCE A DAY
     Route: 065
  42. RAMIPRIL [Interacting]
     Active Substance: RAMIPRIL
     Dosage: 1 DOSAGE FORM, EVERY HOUR(5 MILLIGRAM DAILY)
     Route: 048
  43. RAMIPRIL [Interacting]
     Active Substance: RAMIPRIL
     Dosage: 50 MILLIGRAM, TWO TIMES A DAY
     Route: 048
  44. RAMIPRIL [Interacting]
     Active Substance: RAMIPRIL
     Dosage: 5 MILLIGRAM, EVERY HOUR
     Route: 065
  45. RAMIPRIL [Interacting]
     Active Substance: RAMIPRIL
     Indication: Product used for unknown indication
     Dosage: 5 MILLIGRAM, ONCE A DAY
     Route: 065
  46. ZOLPIDEM [Interacting]
     Active Substance: ZOLPIDEM TARTRATE
     Indication: Depression
     Dosage: 10 MILLIGRAM, ONCE A DAY
     Route: 048
  47. ZOLPIDEM [Interacting]
     Active Substance: ZOLPIDEM TARTRATE
     Dosage: 10 MILLILITRE PER KILOGRAM
     Route: 065
  48. ZOLPIDEM [Interacting]
     Active Substance: ZOLPIDEM TARTRATE
     Dosage: 100 MILLIGRAM, ONCE A DAY
     Route: 065
  49. ZOLPIDEM [Interacting]
     Active Substance: ZOLPIDEM TARTRATE
     Dosage: 1 DOSAGE FORM, EVERY HOUR
     Route: 065
  50. ZOLPIDEM [Interacting]
     Active Substance: ZOLPIDEM TARTRATE
     Dosage: 100 MILLIGRAM, EVERY HOUR
     Route: 065
  51. ZOLPIDEM [Interacting]
     Active Substance: ZOLPIDEM TARTRATE
     Dosage: 1 DOSAGE FORM, TWO TIMES A DAY
     Route: 065
  52. ZOLPIDEM [Interacting]
     Active Substance: ZOLPIDEM TARTRATE
     Dosage: 1 DOSAGE FORM, ONCE A DAY
     Route: 065
  53. ZOLPIDEM [Interacting]
     Active Substance: ZOLPIDEM TARTRATE
     Dosage: EVERY HOUR
     Route: 065
  54. BENSERAZIDE HYDROCHLORIDE\LEVODOPA [Suspect]
     Active Substance: BENSERAZIDE HYDROCHLORIDE\LEVODOPA
     Indication: Product used for unknown indication
     Dosage: 187.5 MILLIGRAM, ONCE A DA,62.5 MG, TID Y
     Route: 065
  55. BENSERAZIDE HYDROCHLORIDE\LEVODOPA [Suspect]
     Active Substance: BENSERAZIDE HYDROCHLORIDE\LEVODOPA
     Dosage: 6.25 MILLIGRAM, 3 TIMES A DAY
     Route: 065
  56. BENSERAZIDE HYDROCHLORIDE\LEVODOPA [Suspect]
     Active Substance: BENSERAZIDE HYDROCHLORIDE\LEVODOPA
     Route: 065
  57. HYDROCHLOROTHIAZIDE [Interacting]
     Active Substance: HYDROCHLOROTHIAZIDE
     Indication: Product used for unknown indication
     Dosage: 25 MILLIGRAM, ONCE A DAY
     Route: 048
  58. HYDROCHLOROTHIAZIDE [Interacting]
     Active Substance: HYDROCHLOROTHIAZIDE
     Dosage: 1 DOSAGE FORM, ONCE A DAY
     Route: 065
  59. HYDROCHLOROTHIAZIDE [Interacting]
     Active Substance: HYDROCHLOROTHIAZIDE
     Dosage: 1 DOSAGE FORM, TWO TIMES A DAY
     Route: 065
  60. HYDROCHLOROTHIAZIDE [Interacting]
     Active Substance: HYDROCHLOROTHIAZIDE
     Dosage: 1 DOSAGE FORM, EVERY HOUR
     Route: 065
  61. HYDROCHLOROTHIAZIDE [Interacting]
     Active Substance: HYDROCHLOROTHIAZIDE
     Dosage: 25 MILLIGRAM, EVERY HOUR
     Route: 065
  62. HYDROCHLOROTHIAZIDE [Interacting]
     Active Substance: HYDROCHLOROTHIAZIDE
     Dosage: 1 DOSAGE FORM, TWO TIMES A DAY
     Route: 065
  63. HYDROCHLOROTHIAZIDE [Interacting]
     Active Substance: HYDROCHLOROTHIAZIDE
     Dosage: TWO TIMES A DAY
     Route: 065
  64. HYDROCHLOROTHIAZIDE [Interacting]
     Active Substance: HYDROCHLOROTHIAZIDE
     Dosage: EVERY HOUR
     Route: 065
  65. CITALOPRAM [Interacting]
     Active Substance: CITALOPRAM
     Indication: Depression
     Dosage: 40 MILLIGRAM, ONCE A DAY (DRUG LIST AT THE ADMISSION)
     Route: 048
  66. CITALOPRAM [Interacting]
     Active Substance: CITALOPRAM
     Dosage: 1 DOSAGE FORM, EVERY HOUR
     Route: 065
  67. CITALOPRAM [Interacting]
     Active Substance: CITALOPRAM
     Dosage: 1 DOSAGE FORM, ONCE A DAY
     Route: 048
  68. CHOLECALCIFEROL [Suspect]
     Active Substance: CHOLECALCIFEROL
     Indication: Product used for unknown indication
     Dosage: 1 DOSAGE FORM, ONCE A DAY
     Route: 065
  69. DEXTROSE\NIKETHAMIDE [Suspect]
     Active Substance: DEXTROSE\NIKETHAMIDE
     Indication: Product used for unknown indication
     Dosage: 20 MILLIGRAM, TWO TIMES A DAY
     Route: 065
  70. DEXTROSE\NIKETHAMIDE [Suspect]
     Active Substance: DEXTROSE\NIKETHAMIDE
     Route: 065
  71. DABIGATRAN [Interacting]
     Active Substance: DABIGATRAN
     Indication: Product used for unknown indication
     Dosage: 110 MILLIGRAM, TWO TIMES A DAY(1-0-1; AT LEAST FOR 2 YEARS)
     Route: 065
  72. DABIGATRAN [Interacting]
     Active Substance: DABIGATRAN
     Dosage: 2 DOSAGE FORM, ONCE A DAY
     Route: 065
  73. DABIGATRAN [Interacting]
     Active Substance: DABIGATRAN
     Dosage: 220 MILLIGRAM, ONCE A DAY, (110 MG, BID/DRUG LIST AT THE ADMISSION )
     Route: 065
  74. DABIGATRAN [Interacting]
     Active Substance: DABIGATRAN
     Dosage: 20 MILLIGRAM, TWO TIMES A DAY
     Route: 065
  75. DABIGATRAN [Interacting]
     Active Substance: DABIGATRAN
     Dosage: 20 MILLIGRAM, ONCE A DAY
     Route: 048
  76. DABIGATRAN [Interacting]
     Active Substance: DABIGATRAN
     Dosage: 1 DOSAGE FORM, TWO TIMES A DAY
     Route: 065
  77. DABIGATRAN [Interacting]
     Active Substance: DABIGATRAN
     Dosage: UNK, ONCE A DAY
     Route: 048
  78. DENOSUMAB [Suspect]
     Active Substance: DENOSUMAB
     Indication: Product used for unknown indication
     Route: 065
  79. FUROSEMIDE [Suspect]
     Active Substance: FUROSEMIDE
     Indication: Product used for unknown indication
     Route: 065
  80. GLICLAZIDE [Interacting]
     Active Substance: GLICLAZIDE
     Indication: Type 2 diabetes mellitus
     Dosage: 60 MILLIGRAM, 3 TIMES A DAY
     Route: 048
  81. GLICLAZIDE [Interacting]
     Active Substance: GLICLAZIDE
     Dosage: 3 DOSAGE FORM, ONCE A DAY
     Route: 065
  82. GLICLAZIDE [Interacting]
     Active Substance: GLICLAZIDE
     Dosage: 180 MILLIGRAM, ONCE A DAY, (60 MG, TID/1-1-1)
     Route: 065
  83. GLICLAZIDE [Interacting]
     Active Substance: GLICLAZIDE
     Dosage: 1 DOSAGE FORM, 3 TIMES A DAY
     Route: 065
  84. GLICLAZIDE [Suspect]
     Active Substance: GLICLAZIDE
     Indication: Type 2 diabetes mellitus
     Dosage: 60 MILLIGRAM, 3 TIMES A DAY
     Route: 065
  85. GLICLAZIDE [Suspect]
     Active Substance: GLICLAZIDE
     Dosage: 40 MILLIGRAM, TWO TIMES A DAY, (3 DF (3 TABLETS EVERY 2ND DAY). 120 MG )
     Route: 065
  86. DEXTROSE [Interacting]
     Active Substance: DEXTROSE MONOHYDRATE
     Indication: Product used for unknown indication
     Route: 065
  87. DEXTROSE\NIKETHAMIDE [Interacting]
     Active Substance: DEXTROSE\NIKETHAMIDE
     Indication: Product used for unknown indication
     Dosage: 20 MILLIGRAM, TWO TIMES A DAY (1,5 + 125 MG ON DEMAND )
     Route: 065
  88. DEXTROSE\NIKETHAMIDE [Interacting]
     Active Substance: DEXTROSE\NIKETHAMIDE
     Route: 065
  89. DEXTROSE\NIKETHAMIDE [Interacting]
     Active Substance: DEXTROSE\NIKETHAMIDE
     Route: 065
  90. HYDROXYZINE [Interacting]
     Active Substance: HYDROXYZINE HYDROCHLORIDE
     Indication: Product used for unknown indication
     Route: 048
  91. HYDROXYZINE [Interacting]
     Active Substance: HYDROXYZINE HYDROCHLORIDE
     Dosage: 25 MILLIGRAM, TWO TIMES A DAY(DOSAGE SCHEDULE: ON DEMAND, TYPICALLY 2 X/24 H )
     Route: 065
  92. HYDROXYZINE [Interacting]
     Active Substance: HYDROXYZINE HYDROCHLORIDE
     Dosage: 40 MILLIGRAM, ONCE A DAY,40 MG, QD/1-0-0/25 MG, AD HOC, USUALLY
     Route: 048
  93. HYDROXYZINE [Interacting]
     Active Substance: HYDROXYZINE HYDROCHLORIDE
     Dosage: 2 DOSAGE FORM, ONCE A DAY,2 DF, QD/25 MG, AD HOC, USUALLY
     Route: 065
  94. HYDROXYZINE [Interacting]
     Active Substance: HYDROXYZINE HYDROCHLORIDE
     Dosage: 50 MILLIGRAM, ONCE A DAY
     Route: 065
  95. HYDROXYZINE [Interacting]
     Active Substance: HYDROXYZINE HYDROCHLORIDE
     Dosage: 2 DOSAGE FORM, ONCE A DAY,2 DF, QD/25 MG, AD HOC, USUALLY
     Route: 065
  96. HYDROXYZINE [Interacting]
     Active Substance: HYDROXYZINE HYDROCHLORIDE
     Dosage: 1 DOSAGE FORM, ONCE A DAY
     Route: 065
  97. HYDROXYZINE [Interacting]
     Active Substance: HYDROXYZINE HYDROCHLORIDE
     Dosage: 25 MILLIGRAM, ONCE A DAY
     Route: 048
  98. HYDROXYZINE HYDROCHLORIDE [Suspect]
     Active Substance: HYDROXYZINE HYDROCHLORIDE
     Indication: Product used for unknown indication
     Route: 065
  99. HYDROXYZINE HYDROCHLORIDE [Suspect]
     Active Substance: HYDROXYZINE HYDROCHLORIDE
     Dosage: 40 MILLIGRAM
     Route: 065
  100. HYDROXYZINE HYDROCHLORIDE [Suspect]
     Active Substance: HYDROXYZINE HYDROCHLORIDE
     Dosage: 1 DOSAGE FORM, EVERY HOUR
     Route: 065
  101. HYDROXYZINE HYDROCHLORIDE [Suspect]
     Active Substance: HYDROXYZINE HYDROCHLORIDE
     Route: 065
  102. HYDROXYZINE HYDROCHLORIDE [Suspect]
     Active Substance: HYDROXYZINE HYDROCHLORIDE
     Dosage: EVERY HOUR
     Route: 065
  103. IMDUR [Interacting]
     Active Substance: ISOSORBIDE MONONITRATE
     Indication: Product used for unknown indication
     Dosage: 50 MILLIGRAM, ONCE A DAY (ON DEMAND, TYPICALLY 1-2 X/24 H)
     Route: 048
  104. IMDUR [Interacting]
     Active Substance: ISOSORBIDE MONONITRATE
     Dosage: 100 MILLIGRAM, ONCE A DAY,
     Route: 065
  105. IMDUR [Interacting]
     Active Substance: ISOSORBIDE MONONITRATE
     Dosage: TWO TIMES A DAY
     Route: 065
  106. IMDUR [Interacting]
     Active Substance: ISOSORBIDE MONONITRATE
     Route: 065
  107. IMDUR [Interacting]
     Active Substance: ISOSORBIDE MONONITRATE
     Dosage: 50 MILLIGRAM, EVERY HOUR
     Route: 065
  108. IMDUR [Interacting]
     Active Substance: ISOSORBIDE MONONITRATE
     Dosage: 1 DOSAGE FORM, TWO TIMES A DAY
     Route: 065
  109. IMDUR [Interacting]
     Active Substance: ISOSORBIDE MONONITRATE
     Route: 048
  110. ISOSORBIDE MONONITRATE [Suspect]
     Active Substance: ISOSORBIDE MONONITRATE
     Indication: Coronary artery disease
     Route: 048
  111. ISOSORBIDE MONONITRATE [Suspect]
     Active Substance: ISOSORBIDE MONONITRATE
     Dosage: 1 DOSAGE FORM, ONCE A DAY
     Route: 048
  112. ISOSORBIDE MONONITRATE [Interacting]
     Active Substance: ISOSORBIDE MONONITRATE
     Indication: Product used for unknown indication
     Route: 065
  113. ISOSORBIDE MONONITRATE [Interacting]
     Active Substance: ISOSORBIDE MONONITRATE
     Dosage: 100 MILLIGRAM, ONCE A DAY (AS NEEDED, AV. ONCE/TWICE, DAILY)
     Route: 065
  114. ISOSORBIDE MONONITRATE [Interacting]
     Active Substance: ISOSORBIDE MONONITRATE
     Dosage: 50 MILLIGRAM, ONCE A DAY (ON DEMAND, TYPICALLY 1-2 X/24 H)
     Route: 065
  115. ISOSORBIDE MONONITRATE [Interacting]
     Active Substance: ISOSORBIDE MONONITRATE
     Dosage: UNK UNK, TWO TIMES A DAY
     Route: 065
  116. POTASSIUM CHLORIDE [Interacting]
     Active Substance: POTASSIUM CHLORIDE
     Indication: Product used for unknown indication
     Dosage: 391 MILLIGRAM, EVERY OTHER DAY
     Route: 065
  117. POTASSIUM CHLORIDE [Interacting]
     Active Substance: POTASSIUM CHLORIDE
     Dosage: 1 DOSAGE FORM, TWO TIMES A DAY
     Route: 065
  118. POTASSIUM CHLORIDE [Interacting]
     Active Substance: POTASSIUM CHLORIDE
     Route: 065
  119. POTASSIUM CHLORIDE [Interacting]
     Active Substance: POTASSIUM CHLORIDE
     Dosage: 782 MILLIGRAM, ONCE A DAY (391 MG, BID )
     Route: 065
  120. POTASSIUM CHLORIDE [Interacting]
     Active Substance: POTASSIUM CHLORIDE
     Dosage: 20 MILLIGRAM, TWO TIMES A DAY
     Route: 065
  121. POTASSIUM CHLORIDE [Interacting]
     Active Substance: POTASSIUM CHLORIDE
     Dosage: 2 DOSAGE FORM, ONCE A DAY
     Route: 065
  122. POTASSIUM CHLORIDE [Interacting]
     Active Substance: POTASSIUM CHLORIDE
     Route: 065
  123. LEVOTHYROXINE [Interacting]
     Active Substance: LEVOTHYROXINE
     Indication: Product used for unknown indication
     Dosage: 100 MICROGRAM, ONCE A DAY(1-10-0 AT LEAST FOR 2 YEARS)
     Route: 065
  124. LEVOTHYROXINE [Interacting]
     Active Substance: LEVOTHYROXINE
     Dosage: 1 DOSAGE FORM, ONCE A DAY
     Route: 065
  125. LEVOTHYROXINE [Interacting]
     Active Substance: LEVOTHYROXINE
     Dosage: 20 MICROGRAM, TWO TIMES A DAY
     Route: 065
  126. LEVOTHYROXINE [Interacting]
     Active Substance: LEVOTHYROXINE
     Dosage: 25 MICROGRAM, ONCE A DAY
     Route: 065
  127. LEVOTHYROXINE [Interacting]
     Active Substance: LEVOTHYROXINE
     Dosage: 25 MILLIGRAM, EVERY HOUR
     Route: 065
  128. LEVOTHYROXINE [Interacting]
     Active Substance: LEVOTHYROXINE
     Dosage: 10 MICROGRAM, EVERY HOUR
     Route: 065
  129. LEVOTHYROXINE [Interacting]
     Active Substance: LEVOTHYROXINE
     Dosage: 100 MILLIGRAM, ONCE A DAY
     Route: 065
  130. METOCLOPRAMIDE [Interacting]
     Active Substance: METOCLOPRAMIDE
     Indication: Constipation
     Route: 065
  131. METOCLOPRAMIDE [Interacting]
     Active Substance: METOCLOPRAMIDE
     Route: 065
  132. METOCLOPRAMIDE [Interacting]
     Active Substance: METOCLOPRAMIDE
     Route: 065
  133. METOCLOPRAMIDE [Interacting]
     Active Substance: METOCLOPRAMIDE
     Route: 048
  134. METOCLOPRAMIDE [Suspect]
     Active Substance: METOCLOPRAMIDE
     Indication: Product used for unknown indication
     Route: 065
  135. METFORMIN [Interacting]
     Active Substance: METFORMIN HYDROCHLORIDE
     Indication: Type 2 diabetes mellitus
     Route: 048
  136. METOPROLOL [Interacting]
     Active Substance: METOPROLOL
     Indication: Hypertension
     Dosage: 100 MILLIGRAM, ONCE A DAY
     Route: 065
  137. METOPROLOL [Interacting]
     Active Substance: METOPROLOL
     Dosage: 1 DOSAGE FORM, TWO TIMES A DAY (1-0-1/2 (DOSE REDUCE))
     Route: 065
  138. METOPROLOL [Interacting]
     Active Substance: METOPROLOL
     Dosage: 50 MILLIGRAM, TWO TIMES A DAY(100 MILLIGRAM DAILY; 1-0-1)
     Route: 065
  139. METOPROLOL [Interacting]
     Active Substance: METOPROLOL
     Dosage: DOSAGE SCHEDULE: 1-0-1/2 (DOSE REDUCE)
     Route: 065
  140. METOPROLOL [Interacting]
     Active Substance: METOPROLOL
     Dosage: 1 DOSAGE FORM, ONCE A DAY
     Route: 048
  141. METOPROLOL [Suspect]
     Active Substance: METOPROLOL
     Indication: Product used for unknown indication
     Route: 065
  142. METOPROLOL [Suspect]
     Active Substance: METOPROLOL
     Route: 065
  143. NIKETHAMIDE [Interacting]
     Active Substance: NIKETHAMIDE
     Indication: Product used for unknown indication
     Route: 065
  144. NIKETHAMIDE [Interacting]
     Active Substance: NIKETHAMIDE
     Route: 065
  145. NIKETHAMIDE [Interacting]
     Active Substance: NIKETHAMIDE
     Dosage: 20 MILLIGRAM, TWO TIMES A DAY
     Route: 065
  146. OMEPRAZOLE [Suspect]
     Active Substance: OMEPRAZOLE
     Indication: Product used for unknown indication
     Dosage: 20 MILLIGRAM, TWO TIMES A DAY(20 MILLIGRAM(1-1-0)(2 TABLETS PER DAY))
     Route: 048
  147. OMEPRAZOLE [Suspect]
     Active Substance: OMEPRAZOLE
     Dosage: 2 DOSAGE FORM, ONCE A DAY
     Route: 065
  148. OMEPRAZOLE [Suspect]
     Active Substance: OMEPRAZOLE
     Dosage: 100 MILLIGRAM, TWO TIMES A DAY
     Route: 065
  149. OMEPRAZOLE [Suspect]
     Active Substance: OMEPRAZOLE
     Dosage: 40 MILLIGRAM, ONCE A DAY
     Route: 048
  150. OMEPRAZOLE [Suspect]
     Active Substance: OMEPRAZOLE
     Dosage: 1 DOSAGE FORM, TWO TIMES A DAY
     Route: 065
  151. OMEPRAZOLE [Suspect]
     Active Substance: OMEPRAZOLE
     Dosage: TWO TIMES A DAY((0.5 DAY)1-1-0)
     Route: 065
  152. OMEPRAZOLE [Suspect]
     Active Substance: OMEPRAZOLE
     Dosage: 40 MILLIGRAM, TWO TIMES A DAY
     Route: 048
  153. OMEPRAZOLE [Suspect]
     Active Substance: OMEPRAZOLE
     Dosage: 40 MILLIGRAM, ONCE A DAY
  154. OMEPRAZOLE [Suspect]
     Active Substance: OMEPRAZOLE
     Dosage: 200 MILLIGRAM, ONCE A DAY
     Route: 065
  155. POTASSIUM CHLORIDE [Interacting]
     Active Substance: POTASSIUM CHLORIDE
     Indication: Product used for unknown indication
     Dosage: 391 MILLIGRAM, EVERY OTHER DAY
     Route: 065
  156. POTASSIUM CHLORIDE [Interacting]
     Active Substance: POTASSIUM CHLORIDE
     Dosage: 20 MILLIGRAM, TWO TIMES A DAY
     Route: 065
  157. POTASSIUM CHLORIDE [Interacting]
     Active Substance: POTASSIUM CHLORIDE
     Dosage: 782 MILLIGRAM, ONCE A DAY (391 MG, TWO TIME A DAY)
     Route: 065
  158. POTASSIUM CHLORIDE [Interacting]
     Active Substance: POTASSIUM CHLORIDE
     Dosage: 1 DOSAGE FORM, TWO TIMES A DA(391 MG K+ )Y
     Route: 065
  159. POTASSIUM CHLORIDE [Interacting]
     Active Substance: POTASSIUM CHLORIDE
     Route: 048
  160. POTASSIUM CHLORIDE [Interacting]
     Active Substance: POTASSIUM CHLORIDE
     Dosage: 391 MILLIGRAM, TWO TIMES A DAY
     Route: 048
  161. POTASSIUM CHLORIDE\RIBOFLAVIN 5^-PHOSPHATE SODIUM [Suspect]
     Active Substance: POTASSIUM CHLORIDE\RIBOFLAVIN 5^-PHOSPHATE SODIUM
     Indication: Product used for unknown indication
     Route: 065
  162. SPIRONOLACTONE [Suspect]
     Active Substance: SPIRONOLACTONE
     Indication: Product used for unknown indication
     Dosage: 100 MILLIGRAM, ONCE A DAY(0-1-0; AT LEAST FOR 2 YEARS )
     Route: 048
  163. SPIRONOLACTONE [Suspect]
     Active Substance: SPIRONOLACTONE
     Dosage: 1 DOSAGE FORM, ONCE A DAY
     Route: 065
  164. SPIRONOLACTONE [Suspect]
     Active Substance: SPIRONOLACTONE
     Dosage: UNK, TWO TIMES A DAY
     Route: 065
  165. SPIRONOLACTONE [Suspect]
     Active Substance: SPIRONOLACTONE
     Dosage: 100 MILLIGRAM, EVERY HOUR
     Route: 065
  166. SPIRONOLACTONE [Suspect]
     Active Substance: SPIRONOLACTONE
     Dosage: 1 DOSAGE FORM, TWO TIMES A DAY
     Route: 065
  167. ALBUTEROL [Interacting]
     Active Substance: ALBUTEROL
     Indication: Product used for unknown indication
     Route: 048
  168. ALBUTEROL [Interacting]
     Active Substance: ALBUTEROL
     Dosage: 20 MICROGRAM, TWO TIMES A DAY
     Route: 065
  169. ALBUTEROL [Interacting]
     Active Substance: ALBUTEROL
     Route: 065
  170. ALBUTEROL [Interacting]
     Active Substance: ALBUTEROL
     Route: 065
  171. TORSEMIDE [Suspect]
     Active Substance: TORSEMIDE
     Indication: Product used for unknown indication
     Dosage: 5 MILLIGRAM, ONCE A DAY(5 MG, QD/1-0-0)
     Route: 048
  172. TRAMADOL [Interacting]
     Active Substance: TRAMADOL
     Indication: Pain
     Dosage: 200 MILLIGRAM, ONCE A DAY (INTERMITTENTLY)
     Route: 048
  173. TRAMADOL [Interacting]
     Active Substance: TRAMADOL
     Route: 048
  174. TRAMADOL [Interacting]
     Active Substance: TRAMADOL
     Route: 048
  175. TRAMADOL [Interacting]
     Active Substance: TRAMADOL
     Route: 048
  176. TRAMADOL [Interacting]
     Active Substance: TRAMADOL
     Route: 065
  177. TRAMADOL [Interacting]
     Active Substance: TRAMADOL
     Dosage: 20 MILLIGRAM, TWO TIMES A DAY
     Route: 065
  178. TRAMADOL [Interacting]
     Active Substance: TRAMADOL
     Dosage: 100 MILLIGRAM, TWO TIMES A DAY
     Route: 065
  179. TRAMADOL [Interacting]
     Active Substance: TRAMADOL
     Route: 048
  180. VITAMIN D3 [Suspect]
     Active Substance: CHOLECALCIFEROL
     Indication: Product used for unknown indication
     Dosage: UNK, ONCE A DAY(2000I)
     Route: 065
  181. VORTIOXETINE [Suspect]
     Active Substance: VORTIOXETINE
     Indication: Product used for unknown indication
     Dosage: 10 MILLIGRAM, ONCE A DAY,10 MG, QD/0-0-1
     Route: 065
  182. ZOLPIDEM TARTRATE [Suspect]
     Active Substance: ZOLPIDEM TARTRATE
     Indication: Depression
     Dosage: 10 MILLIGRAM/KILOGRAM, ONCE A DAY(10 MG, QD (0-0-1) )
     Route: 065
  183. ZOLPIDEM TARTRATE [Suspect]
     Active Substance: ZOLPIDEM TARTRATE
     Dosage: 1 DOSAGE FORM, ONCE A DAY
     Route: 065
  184. ZOLPIDEM TARTRATE [Suspect]
     Active Substance: ZOLPIDEM TARTRATE
     Route: 065
  185. ZOLPIDEM TARTRATE [Suspect]
     Active Substance: ZOLPIDEM TARTRATE
     Dosage: 100 MILLIGRAM, ONCE A DAY
     Route: 065
  186. ZOLPIDEM TARTRATE [Suspect]
     Active Substance: ZOLPIDEM TARTRATE
     Dosage: 10 MILLIGRAM, ONCE A DAY
     Route: 048
  187. AMLODIPINE BESYLATE [Concomitant]
     Active Substance: AMLODIPINE BESYLATE
     Indication: Hypertension
     Dosage: 1 DOSAGE FORM, ONCE A DAY ((AMLODIPINE BESILATE: 50.0MG)
     Route: 048
  188. ALLOPURINOL [Concomitant]
     Active Substance: ALLOPURINOL
     Indication: Product used for unknown indication
     Route: 065
  189. ALPRAZOLAM [Concomitant]
     Active Substance: ALPRAZOLAM
     Indication: Product used for unknown indication
     Route: 065
  190. ACARBOSE [Concomitant]
     Active Substance: ACARBOSE
     Indication: Hyperglycaemia
     Route: 048
  191. ACARBOSE [Concomitant]
     Active Substance: ACARBOSE
     Dosage: 3 DOSAGE FORM, ONCE A DAY
     Route: 048
  192. INSULIN NOS [Concomitant]
     Active Substance: INSULIN NOS
     Indication: Blood glucose abnormal
     Dosage: ONCE A DAY
     Route: 065
  193. ACETAMINOPHEN [Concomitant]
     Active Substance: ACETAMINOPHEN
     Indication: Product used for unknown indication
     Route: 065
  194. RUFLOXACIN [Concomitant]
     Active Substance: RUFLOXACIN
     Indication: Nasopharyngitis
     Route: 048
  195. HYDROTALCITE [Concomitant]
     Active Substance: HYDROTALCITE
     Indication: Abdominal pain upper
     Route: 065
  196. ZOLPIDEM [Concomitant]
     Active Substance: ZOLPIDEM TARTRATE
     Indication: Product used for unknown indication
     Route: 065
  197. QUETIAPINE [Concomitant]
     Active Substance: QUETIAPINE
     Indication: Product used for unknown indication
     Dosage: 25 MILLIGRAM, ONCE A DAY (0-0-1)
     Route: 065
  198. FUROSEMIDE [Concomitant]
     Active Substance: FUROSEMIDE
     Indication: Product used for unknown indication
     Route: 065
  199. ATORVASTATIN [Concomitant]
     Active Substance: ATORVASTATIN
     Indication: Product used for unknown indication
     Route: 065
  200. LEVOTHYROXINE [Concomitant]
     Active Substance: LEVOTHYROXINE
     Indication: Product used for unknown indication
     Route: 065
  201. LEVOTHYROXINE [Concomitant]
     Active Substance: LEVOTHYROXINE
     Route: 065
  202. BETAHISTINE [Concomitant]
     Active Substance: BETAHISTINE
     Indication: Product used for unknown indication
     Route: 065
  203. RAMIPRIL [Concomitant]
     Active Substance: RAMIPRIL
     Indication: Product used for unknown indication
     Route: 065
  204. METFORMIN [Concomitant]
     Active Substance: METFORMIN HYDROCHLORIDE
     Indication: Product used for unknown indication
     Route: 065
  205. OMEPRAZOLE [Concomitant]
     Active Substance: OMEPRAZOLE
     Indication: Product used for unknown indication
     Route: 065
  206. CITALOPRAM [Concomitant]
     Active Substance: CITALOPRAM
     Indication: Product used for unknown indication
     Route: 065
  207. CITALOPRAM [Concomitant]
     Active Substance: CITALOPRAM
     Route: 065
  208. METOPROLOL [Concomitant]
     Active Substance: METOPROLOL
     Indication: Product used for unknown indication
     Route: 065
  209. GLICLAZIDE [Concomitant]
     Active Substance: GLICLAZIDE
     Indication: Type 2 diabetes mellitus
     Route: 065

REACTIONS (68)
  - Urinary retention [Recovered/Resolved]
  - Dementia [Unknown]
  - Multiple drug therapy [Recovering/Resolving]
  - Hypoglycaemia [Recovered/Resolved]
  - Parkinsonism [Recovering/Resolving]
  - Musculoskeletal stiffness [Recovering/Resolving]
  - Peripheral circulatory failure [Unknown]
  - Osteoporosis [Unknown]
  - Hyponatraemia [Unknown]
  - Mobility decreased [Recovering/Resolving]
  - Cognitive disorder [Unknown]
  - Depression [Unknown]
  - Hypotension [Recovering/Resolving]
  - Pruritus [Unknown]
  - Initial insomnia [Unknown]
  - Arthralgia [Unknown]
  - Nausea [Unknown]
  - Constipation [Unknown]
  - Abdominal pain upper [Unknown]
  - Melaena [Unknown]
  - Blood creatine increased [Unknown]
  - Blood cholesterol decreased [Unknown]
  - Blood potassium increased [Unknown]
  - Blood urea increased [Unknown]
  - Hypotonia [Recovering/Resolving]
  - Motor dysfunction [Recovering/Resolving]
  - Syncope [Recovering/Resolving]
  - Fall [Recovering/Resolving]
  - Dizziness [Recovering/Resolving]
  - Sedation [Recovering/Resolving]
  - Stupor [Recovering/Resolving]
  - Blood pressure decreased [Unknown]
  - Hiatus hernia [Unknown]
  - Hyperkalaemia [Unknown]
  - Gastric polyps [Unknown]
  - Dysuria [Unknown]
  - Atrioventricular block first degree [Recovering/Resolving]
  - Diabetes mellitus inadequate control [Unknown]
  - Bradykinesia [Unknown]
  - Muscle rigidity [Unknown]
  - Insomnia [Unknown]
  - Hyperglycaemia [Unknown]
  - Neuroglycopenia [Unknown]
  - Drug interaction [Recovered/Resolved]
  - Labelled drug-drug interaction issue [Recovered/Resolved]
  - Drug dependence [Unknown]
  - Medication error [Unknown]
  - Incorrect product administration duration [Unknown]
  - Product use issue [Unknown]
  - Off label use [Unknown]
  - Product use in unapproved indication [Unknown]
  - Drug ineffective [Unknown]
  - Product administration error [Unknown]
  - Atrial fibrillation [Unknown]
  - Femur fracture [Unknown]
  - Type 2 diabetes mellitus [Unknown]
  - Cholecystectomy [Unknown]
  - Micturition disorder [Unknown]
  - Hypertension [Unknown]
  - Coronary artery disease [Unknown]
  - Autoimmune thyroiditis [Unknown]
  - Cardiac failure [Unknown]
  - Pancreatitis acute [Unknown]
  - Chronic kidney disease [Unknown]
  - Peptic ulcer [Unknown]
  - Deep vein thrombosis [Unknown]
  - Obesity [Unknown]
  - Gastrointestinal disorder [Unknown]

NARRATIVE: CASE EVENT DATE: 20210101
